FAERS Safety Report 7726859-8 (Version None)
Quarter: 2011Q3

REPORT INFORMATION
  Report Type: 
  Country: None (occurrence: None)
  Receive Date: 20110902
  Receipt Date: 20110830
  Transmission Date: 20111222
  Serious: No
  Sender: FDA-Public Use
  Company Number: US-TEVA-298852USA

PATIENT
  Sex: Female
  Weight: 93.524 kg

DRUGS (6)
  1. XANAX [Concomitant]
  2. PROAIR HFA [Suspect]
     Route: 055
     Dates: start: 20080101
  3. CELEXA [Concomitant]
  4. ASPIRIN [Concomitant]
  5. CRESTOR [Concomitant]
  6. ALBUTEROL NEBULIZED [Concomitant]

REACTIONS (1)
  - DRUG INEFFECTIVE [None]
